FAERS Safety Report 7032318-0 (Version None)
Quarter: 2010Q4

REPORT INFORMATION
  Report Type: 
  Country: None (occurrence: None)
  Receive Date: 20101007
  Receipt Date: 20100614
  Transmission Date: 20110411
  Serious: Yes (Death, Hospitalization)
  Sender: FDA-Public Use
  Company Number: IT-BRISTOL-MYERS SQUIBB COMPANY-15153760

PATIENT
  Age: 70 Year
  Sex: Male

DRUGS (4)
  1. CETUXIMAB [Suspect]
     Indication: COLORECTAL CANCER
     Dosage: MOST RECENT INFUSION ON 04MAY2010
     Route: 042
     Dates: start: 20100105, end: 20100504
  2. IRINOTECAN HCL [Suspect]
     Indication: COLORECTAL CANCER
     Dosage: MOST RECENT INFUSION ON 04MAY2010
     Route: 042
     Dates: start: 20100105, end: 20100504
  3. OXALIPLATIN [Suspect]
     Indication: COLORECTAL CANCER
     Dosage: MOST RECENT INFUSION ON 05MAY2010
     Route: 042
     Dates: start: 20100106, end: 20100505
  4. CAPECITABINE [Suspect]
     Indication: COLORECTAL CANCER
     Dosage: FORMULATION:TABLET.MOST RECENT INFUSION ON09MAY2010
     Route: 048
     Dates: start: 20100106, end: 20100509

REACTIONS (2)
  - CARDIAC FAILURE CONGESTIVE [None]
  - SEPSIS [None]
